FAERS Safety Report 19807267 (Version 1)
Quarter: 2021Q3

REPORT INFORMATION
  Report Type: Spontaneous
  Country: US (occurrence: US)
  Receive Date: 20210908
  Receipt Date: 20210908
  Transmission Date: 20211014
  Serious: Yes (Life-Threatening)
  Sender: FDA-Public Use
  Company Number: None

PATIENT
  Age: 43 Year
  Sex: Female

DRUGS (1)
  1. CASIRIVIMAB?IMDEVIMAB [Suspect]
     Active Substance: CASIRIVIMAB\IMDEVIMAB
     Indication: COVID-19
     Route: 042
     Dates: start: 20210908, end: 20210908

REACTIONS (5)
  - Infusion related reaction [None]
  - Dyspnoea [None]
  - Hypokinesia [None]
  - Aphasia [None]
  - Erythema [None]

NARRATIVE: CASE EVENT DATE: 20210908
